FAERS Safety Report 8303584-6 (Version None)
Quarter: 2012Q2

REPORT INFORMATION
  Report Type: 
  Country: None (occurrence: None)
  Receive Date: 20120423
  Receipt Date: 20120420
  Transmission Date: 20120825
  Serious: No
  Sender: FDA-Public Use
  Company Number: US-PFIZER INC-2012098562

PATIENT
  Sex: Female
  Weight: 66.213 kg

DRUGS (1)
  1. CHANTIX [Suspect]
     Indication: SMOKING CESSATION THERAPY
     Dosage: UNK
     Route: 048

REACTIONS (4)
  - DRUG INTERACTION [None]
  - SKIN LESION [None]
  - HYPERSENSITIVITY [None]
  - OEDEMA PERIPHERAL [None]
